FAERS Safety Report 23161987 (Version 2)
Quarter: 2024Q4

REPORT INFORMATION
  Report Type: Spontaneous
  Country: US (occurrence: US)
  Receive Date: 20231109
  Receipt Date: 20241013
  Transmission Date: 20250114
  Serious: No
  Sender: GLAXOSMITHKLINE
  Company Number: US-GSK-US2023152952

PATIENT
  Sex: Female

DRUGS (1)
  1. BENLYSTA [Suspect]
     Active Substance: BELIMUMAB
     Indication: Asthma
     Dosage: 200 MG, WE
     Dates: end: 20231002

REACTIONS (3)
  - Product dose omission issue [Unknown]
  - Product storage error [Unknown]
  - Drug ineffective [Unknown]
